FAERS Safety Report 24265947 (Version 1)
Quarter: 2024Q3

REPORT INFORMATION
  Report Type: Spontaneous
  Country: US (occurrence: US)
  Receive Date: 20240830
  Receipt Date: 20240830
  Transmission Date: 20241017
  Serious: Yes (Other)
  Sender: NOVO NORDISK
  Company Number: US-NOVOPROD-1271786

PATIENT
  Age: 32 Year
  Sex: Female

DRUGS (2)
  1. WEGOVY [Suspect]
     Active Substance: SEMAGLUTIDE
     Dosage: 0.5 MG
     Route: 058
     Dates: start: 20240420
  2. WEGOVY [Suspect]
     Active Substance: SEMAGLUTIDE
     Indication: Obesity
     Dosage: 2.4 MG, QW
     Route: 058
     Dates: start: 20230713

REACTIONS (6)
  - Ovarian cyst ruptured [Unknown]
  - Nephrolithiasis [Unknown]
  - Limb discomfort [Unknown]
  - Muscle strain [Unknown]
  - Muscle rupture [Unknown]
  - Fall [Unknown]

NARRATIVE: CASE EVENT DATE: 20230903
